FAERS Safety Report 17651818 (Version 4)
Quarter: 2022Q2

REPORT INFORMATION
  Report Type: Spontaneous
  Country: JP (occurrence: JP)
  Receive Date: 20200409
  Receipt Date: 20220630
  Transmission Date: 20220720
  Serious: Yes (Other)
  Sender: FDA-Public Use
  Company Number: JP-SANOFI-2020SA028164

PATIENT
  Age: 2 Year
  Sex: Male
  Weight: 12.1 kg

DRUGS (22)
  1. SABRIL [Suspect]
     Active Substance: VIGABATRIN
     Indication: Infantile spasms
     Dosage: 900 MG, BID
     Route: 048
     Dates: start: 20190418, end: 20200112
  2. SABRIL [Suspect]
     Active Substance: VIGABATRIN
     Dosage: 250 MG, BID
     Route: 048
     Dates: start: 20190201, end: 20190208
  3. SABRIL [Suspect]
     Active Substance: VIGABATRIN
     Dosage: 375 MG, BID
     Route: 048
     Dates: start: 20190208, end: 20190220
  4. SABRIL [Suspect]
     Active Substance: VIGABATRIN
     Dosage: 437.5 MG, BID
     Route: 048
     Dates: start: 20190221, end: 20190306
  5. SABRIL [Suspect]
     Active Substance: VIGABATRIN
     Dosage: 500 MG, BID
     Route: 048
     Dates: start: 20190307, end: 20190313
  6. SABRIL [Suspect]
     Active Substance: VIGABATRIN
     Dosage: 625 MG, BID
     Route: 048
     Dates: start: 20190314, end: 20190328
  7. SABRIL [Suspect]
     Active Substance: VIGABATRIN
     Dosage: 750 MG, BID
     Route: 048
     Dates: start: 20190329, end: 20190417
  8. SABRIL [Suspect]
     Active Substance: VIGABATRIN
     Dosage: 750 MG, BID
     Route: 048
     Dates: start: 20200113, end: 20200206
  9. SABRIL [Suspect]
     Active Substance: VIGABATRIN
     Dosage: 500 MG, BID
     Route: 048
     Dates: start: 20200207, end: 20200304
  10. SABRIL [Suspect]
     Active Substance: VIGABATRIN
     Dosage: 250 MG, BID
     Route: 048
     Dates: start: 20200305, end: 20200326
  11. FURSULTIAMINE [FURSULTIAMINE HYDROCHLORIDE] [Concomitant]
     Indication: Product used for unknown indication
     Dosage: DAILY DOSE: 50 MG
     Route: 065
  12. CINAL [Concomitant]
     Indication: Product used for unknown indication
     Dosage: DAILY DOSE: 0.8 G
     Route: 065
  13. TOCOPHERYL NICOTINATE [Concomitant]
     Active Substance: TOCOPHERYL NICOTINATE, D-.ALPHA.
     Indication: Product used for unknown indication
     Dosage: DAILY DOSE: 30 MG
     Route: 065
  14. DIETARY SUPPLEMENT\UBIDECARENONE [Concomitant]
     Active Substance: DIETARY SUPPLEMENT\UBIDECARENONE
     Indication: Product used for unknown indication
     Dosage: DAILY DOSE: 30 MG
     Route: 065
  15. LEVOCARNITINE [Concomitant]
     Active Substance: LEVOCARNITINE
     Indication: Product used for unknown indication
     Dosage: DAILY DOSE: 2 ML
     Route: 065
  16. BIOTIN [Concomitant]
     Active Substance: BIOTIN
     Indication: Product used for unknown indication
     Dosage: DAILY DOSE: 4 MG
     Route: 065
  17. VALPROATE SODIUM [Concomitant]
     Active Substance: VALPROATE SODIUM
     Indication: Infantile spasms
     Dosage: DAILY DOSE: 400 MG
     Route: 065
  18. CARBOCYSTEINE [Concomitant]
     Active Substance: CARBOCYSTEINE
     Indication: Product used for unknown indication
     Dosage: DAILY DOSE: 270 MG
     Route: 065
  19. AMBROXOL HYDROCHLORIDE [Concomitant]
     Active Substance: AMBROXOL HYDROCHLORIDE
     Indication: Product used for unknown indication
     Dosage: DAILY DOSE: 9 MG
     Route: 065
  20. FAMOTIDINE [Concomitant]
     Active Substance: FAMOTIDINE
     Indication: Product used for unknown indication
     Dosage: DAILY DOSE: 10 MG
     Route: 065
  21. LEVETIRACETAM [Concomitant]
     Active Substance: LEVETIRACETAM
     Indication: Infantile spasms
     Dosage: DAILY DOSE: 600 MG
     Route: 065
  22. DISULFIRAM [Concomitant]
     Active Substance: DISULFIRAM
     Indication: Product used for unknown indication
     Dosage: DAILY DOSE: 100 MG
     Route: 065

REACTIONS (3)
  - Magnetic resonance imaging head abnormal [Not Recovered/Not Resolved]
  - Retinogram abnormal [Not Recovered/Not Resolved]
  - Drug ineffective [Unknown]

NARRATIVE: CASE EVENT DATE: 20200109
